FAERS Safety Report 6754223-7 (Version None)
Quarter: 2010Q2

REPORT INFORMATION
  Report Type: 
  Country: None (occurrence: None)
  Receive Date: 20100603
  Receipt Date: 20100526
  Transmission Date: 20101027
  Serious: Yes (Other)
  Sender: FDA-Public Use
  Company Number: US-PFIZER INC-2010066563

PATIENT
  Sex: Female
  Weight: 81.633 kg

DRUGS (1)
  1. GEODON [Suspect]
     Indication: BIPOLAR DISORDER
     Dosage: 200 MG DAILY AT NIGHT
     Route: 048
     Dates: start: 20060901, end: 20090101

REACTIONS (3)
  - HEART RATE IRREGULAR [None]
  - SPEECH DISORDER [None]
  - TARDIVE DYSKINESIA [None]
